FAERS Safety Report 9961407 (Version 2)
Quarter: 2014Q1

REPORT INFORMATION
  Report Type: Report from Study
  Country: JP (occurrence: JP)
  Receive Date: 20140305
  Receipt Date: 20140305
  Transmission Date: 20141002
  Serious: Yes (Death, Other)
  Sender: FDA-Public Use
  Company Number: JP-SA-THYM-1004099

PATIENT
  Age: 13 Year
  Sex: Female
  Weight: 27 kg

DRUGS (7)
  1. THYMOGLOBULINE [Suspect]
     Indication: BONE MARROW CONDITIONING REGIMEN
     Dosage: 35 MG, QD
     Route: 065
     Dates: start: 20120218, end: 20120219
  2. ENDOXAN [Suspect]
     Indication: ACUTE MYELOID LEUKAEMIA
     Dosage: UNK
     Route: 065
     Dates: start: 20120218, end: 20120219
  3. ACICLOVIR [Concomitant]
     Indication: ANTIVIRAL PROPHYLAXIS
     Dosage: UNK
     Dates: start: 20120218, end: 20120327
  4. GRANISETRON [Concomitant]
     Indication: ACUTE MYELOID LEUKAEMIA
     Dosage: UNK
     Dates: start: 20120218, end: 20120221
  5. MESNA [Concomitant]
     Indication: PROPHYLAXIS
     Dosage: UNK
     Dates: start: 20120218, end: 20120219
  6. MESNA [Concomitant]
     Indication: ACUTE MYELOID LEUKAEMIA
     Dosage: UNK
     Dates: start: 20120218, end: 20120219
  7. HYDROXYZINE [Concomitant]
     Indication: PROPHYLAXIS
     Dosage: UNK
     Dates: start: 20120218, end: 20120219

REACTIONS (3)
  - Acute graft versus host disease in skin [Unknown]
  - BK virus infection [Recovered/Resolved]
  - Acute myeloid leukaemia recurrent [Fatal]
